FAERS Safety Report 17946398 (Version 1)
Quarter: 2020Q2

REPORT INFORMATION
  Report Type: Spontaneous
  Country: US (occurrence: US)
  Receive Date: 20200625
  Receipt Date: 20200625
  Transmission Date: 20200714
  Serious: Yes (Death, Other)
  Sender: FDA-Public Use
  Company Number: US-ENDO PHARMACEUTICALS INC-2020-004368

PATIENT
  Age: 31 Year

DRUGS (1)
  1. IBUPROFEN. [Suspect]
     Active Substance: IBUPROFEN
     Indication: PRODUCT USED FOR UNKNOWN INDICATION
     Dosage: UNK UNKNOWN, UNKNOWN
     Route: 048

REACTIONS (10)
  - Rhabdomyolysis [Unknown]
  - Tachycardia [Unknown]
  - Respiratory arrest [Unknown]
  - Alanine aminotransferase increased [Unknown]
  - Renal failure [Unknown]
  - Aspartate aminotransferase increased [Unknown]
  - Electrolyte imbalance [Unknown]
  - Death [Fatal]
  - Coma [Unknown]
  - Acidosis [Unknown]

NARRATIVE: CASE EVENT DATE: 201401
